FAERS Safety Report 19853940 (Version 1)
Quarter: 2021Q3

REPORT INFORMATION
  Report Type: Report from Study
  Country: None (occurrence: CA)
  Receive Date: 20210920
  Receipt Date: 20210920
  Transmission Date: 20211014
  Serious: Yes (Hospitalization)
  Sender: FDA-Public Use
  Company Number: CA-ABBVIE-21K-028-3995562-00

PATIENT
  Age: 84 Year
  Sex: Male

DRUGS (2)
  1. RINVOQ [Suspect]
     Active Substance: UPADACITINIB
     Indication: RHEUMATOID ARTHRITIS
     Route: 048
     Dates: start: 20210615, end: 20210817
  2. RINVOQ [Suspect]
     Active Substance: UPADACITINIB
     Route: 048
     Dates: start: 20210908

REACTIONS (5)
  - Localised infection [Unknown]
  - Amnesia [Unknown]
  - Rheumatoid arthritis [Recovering/Resolving]
  - Fall [Unknown]
  - Arrhythmia [Unknown]

NARRATIVE: CASE EVENT DATE: 2021
